FAERS Safety Report 4944123-7 (Version None)
Quarter: 2006Q1

REPORT INFORMATION
  Report Type: 
  Country: None (occurrence: None)
  Receive Date: 20060309
  Receipt Date: 20060223
  Transmission Date: 20060701
  Serious: Yes (Death)
  Sender: FDA-Public Use
  Company Number: 2006S1001670

PATIENT
  Age: 44 Year
  Sex: Male

DRUGS (6)
  1. CLOZAPINE [Suspect]
     Dosage: 200 MG; TID; ORAL
     Route: 048
     Dates: start: 20020101, end: 20060201
  2. BENZTROPINE MESYLATE [Concomitant]
  3. DOCUSATE [Concomitant]
  4. FLUOXETINE HCL [Concomitant]
  5. VITAMINS NOS [Concomitant]
  6. OMEPRAZOLE [Concomitant]

REACTIONS (1)
  - DEATH [None]
